FAERS Safety Report 23830911 (Version 1)
Quarter: 2024Q2

REPORT INFORMATION
  Report Type: Spontaneous
  Country: CL (occurrence: CL)
  Receive Date: 20240508
  Receipt Date: 20240508
  Transmission Date: 20240716
  Serious: Yes (Hospitalization, Other)
  Sender: FDA-Public Use
  Company Number: CL-ITALFARMACO-2024-000193

PATIENT
  Age: 15 Year
  Sex: Female

DRUGS (9)
  1. DOXYCYCLINE HYCLATE [Suspect]
     Active Substance: DOXYCYCLINE HYCLATE
     Dosage: 1400 MG, ONE TIME
     Route: 048
  2. HOMEOPATHICS [Suspect]
     Active Substance: ARNICA MONTANA\CAUSTICUM\COMFREY ROOT\HOMEOPATHICS\LEDUM PALUSTRE TWIG\PSEUDOGNAPHALIUM OBTUSIFOLIUM
     Dosage: 10 DF, ONE TIME
     Route: 048
  3. AMOXICILLIN [Suspect]
     Active Substance: AMOXICILLIN
     Dosage: 3 G, ONE TIME
     Route: 048
  4. CHLORPHENIRAMINE MALEATE [Suspect]
     Active Substance: CHLORPHENIRAMINE MALEATE
     Dosage: 96 G, ONE TIME
     Route: 048
  5. FAMOTIDINE [Suspect]
     Active Substance: FAMOTIDINE
     Dosage: 7 DF, ONE TIME
     Route: 048
  6. MELOXICAM [Suspect]
     Active Substance: MELOXICAM
     Dosage: 12 DF, ONE TIME
     Route: 048
  7. ACETAMINOPHEN [Suspect]
     Active Substance: ACETAMINOPHEN
     Dosage: 18 G, ONE TIME
  8. TRAMADOL HYDROCHLORIDE [Suspect]
     Active Substance: TRAMADOL HYDROCHLORIDE
     Dosage: 400 MG, ONE TIME
     Route: 048
  9. PREDNISONE [Suspect]
     Active Substance: PREDNISONE
     Dosage: 50 MG, ONE TIME
     Route: 048

REACTIONS (4)
  - Intentional overdose [Unknown]
  - Suicide attempt [Unknown]
  - Restlessness [Unknown]
  - Sinus tachycardia [Unknown]
